FAERS Safety Report 13134744 (Version 2)
Quarter: 2017Q3

REPORT INFORMATION
  Report Type: Spontaneous
  Country: JP (occurrence: JP)
  Receive Date: 20170120
  Receipt Date: 20170707
  Transmission Date: 20171127
  Serious: Yes (Other)
  Sender: FDA-Public Use
  Company Number: JP-PFIZER INC-2017018132

PATIENT
  Age: 36 Year
  Sex: Female
  Weight: 51.8 kg

DRUGS (11)
  1. SINGULAIR [Concomitant]
     Active Substance: MONTELUKAST SODIUM
     Dosage: 10 MG, 1X/DAY
  2. FLUMETHOLON [Concomitant]
     Active Substance: FLUOROMETHOLONE
     Dosage: UNK UNK, AS NEEDED
     Route: 047
  3. ARTIST [Suspect]
     Active Substance: CARVEDILOL
     Dosage: 6.25 MG, 2X/DAY
  4. SPIRONOLACTONE. [Concomitant]
     Active Substance: SPIRONOLACTONE
     Dosage: 50 MG, 2X/DAY
  5. REVATIO [Suspect]
     Active Substance: SILDENAFIL CITRATE
     Indication: PULMONARY HYPERTENSION
     Dosage: 20 MG, 3X/DAY
     Route: 048
  6. RENIVACE [Suspect]
     Active Substance: ENALAPRIL
     Dosage: 10 MG, 1X/DAY
  7. LASIX [Suspect]
     Active Substance: FUROSEMIDE
     Dosage: 40 MG, 2X/DAY
  8. URINORM [Concomitant]
     Active Substance: BENZBROMARONE
     Dosage: 50 MG, 2X/DAY
  9. INTAL [Concomitant]
     Active Substance: CROMOLYN SODIUM
     Dosage: UNK, 4X/DAY
     Route: 047
  10. ZYLORIC [Concomitant]
     Active Substance: ALLOPURINOL
     Dosage: 100 MG, 3X/DAY
  11. PASETOCIN [Concomitant]
     Active Substance: AMOXICILLIN
     Dosage: 250 MG, 1X/DAY

REACTIONS (2)
  - Acute kidney injury [Recovered/Resolved]
  - Hypotension [Unknown]
